FAERS Safety Report 8666261 (Version 2)
Quarter: 2013Q4

REPORT INFORMATION
  Report Type: Spontaneous
  Country: US (occurrence: US)
  Receive Date: 20120716
  Receipt Date: 20131031
  Transmission Date: 20140711
  Serious: No
  Sender: FDA-Public Use
  Company Number: US-009507513-2011SP025220

PATIENT
  Age: 34 Year
  Sex: Female

DRUGS (3)
  1. SAPHRIS [Suspect]
     Indication: SCHIZOAFFECTIVE DISORDER
     Dosage: 5 MG, UNK
     Route: 060
     Dates: start: 20100723, end: 201008
  2. SAPHRIS [Suspect]
     Dosage: 10 MG, HS
     Route: 060
     Dates: start: 201008, end: 201101
  3. SAPHRIS [Suspect]
     Dosage: 5 MG, HS
     Route: 060
     Dates: start: 201101, end: 201105

REACTIONS (6)
  - Galactorrhoea [Recovering/Resolving]
  - Joint swelling [Recovering/Resolving]
  - Oedema [Recovering/Resolving]
  - Inappropriate schedule of drug administration [Recovered/Resolved]
  - Underdose [Not Recovered/Not Resolved]
  - Off label use [Unknown]
